FAERS Safety Report 16600262 (Version 1)
Quarter: 2019Q3

REPORT INFORMATION
  Report Type: Spontaneous
  Country: IT (occurrence: IT)
  Receive Date: 20190720
  Receipt Date: 20190720
  Transmission Date: 20191004
  Serious: Yes (Other)
  Sender: FDA-Public Use
  Company Number: IT-AUROBINDO-AUR-APL-2019-041740

PATIENT

DRUGS (2)
  1. IBUPROFEN. [Suspect]
     Active Substance: IBUPROFEN
     Indication: EAR PAIN
     Dosage: 400 MILLIGRAM, TOTAL
     Route: 048
     Dates: start: 20190410, end: 20190410
  2. CEFIXIME. [Suspect]
     Active Substance: CEFIXIME
     Indication: ANTIBIOTIC THERAPY
     Dosage: 400 MILLIGRAM, TOTAL
     Route: 048
     Dates: start: 20190410, end: 20190410

REACTIONS (3)
  - Skin plaque [Recovering/Resolving]
  - Urticaria [Recovering/Resolving]
  - Angioedema [Recovering/Resolving]

NARRATIVE: CASE EVENT DATE: 20190411
